FAERS Safety Report 20778607 (Version 1)
Quarter: 2022Q2

REPORT INFORMATION
  Report Type: Spontaneous
  Country: US (occurrence: US)
  Receive Date: 20220503
  Receipt Date: 20220503
  Transmission Date: 20220721
  Serious: No
  Sender: FDA-Public Use
  Company Number: US-PFIZER INC-2019226910

PATIENT
  Age: 70 Year
  Sex: Female

DRUGS (6)
  1. LYRICA [Suspect]
     Active Substance: PREGABALIN
     Indication: Trigeminal neuralgia
     Dosage: UNK, 2X/DAY
  2. LYRICA [Suspect]
     Active Substance: PREGABALIN
     Indication: Neuralgia
     Dosage: UNK, 3X/DAY
  3. LYRICA [Suspect]
     Active Substance: PREGABALIN
     Indication: Neuropathy peripheral
     Dosage: 75 MG, 4X/DAY
     Route: 048
  4. LYRICA [Suspect]
     Active Substance: PREGABALIN
     Dosage: 3 DF, DAILY
  5. LYRICA [Suspect]
     Active Substance: PREGABALIN
     Dosage: 2 DF, DAILY
  6. LYRICA [Suspect]
     Active Substance: PREGABALIN
     Dosage: UNK, 4X/DAY

REACTIONS (2)
  - Drug ineffective [Unknown]
  - Product prescribing issue [Unknown]
